FAERS Safety Report 9279656 (Version 1)
Quarter: 2013Q2

REPORT INFORMATION
  Report Type: Spontaneous
  Country: DE (occurrence: DE)
  Receive Date: 20130509
  Receipt Date: 20130509
  Transmission Date: 20140414
  Serious: Yes (Hospitalization, Disabling)
  Sender: FDA-Public Use
  Company Number: DE-BIOGENIDEC-2013BI040269

PATIENT
  Age: 47 Year
  Sex: Male
  Weight: 81 kg

DRUGS (1)
  1. AVONEX [Suspect]
     Indication: MULTIPLE SCLEROSIS
     Route: 030
     Dates: start: 20020101

REACTIONS (3)
  - Chills [Recovered/Resolved]
  - Optic neuritis [Not Recovered/Not Resolved]
  - Blindness [Not Recovered/Not Resolved]
